FAERS Safety Report 7549514-6 (Version None)
Quarter: 2011Q2

REPORT INFORMATION
  Report Type: 
  Country: None (occurrence: None)
  Receive Date: 20110615
  Receipt Date: 20051019
  Transmission Date: 20111010
  Serious: Yes (Hospitalization)
  Sender: FDA-Public Use
  Company Number: PHFR2005GB03363

PATIENT
  Sex: Male
  Weight: 80 kg

DRUGS (4)
  1. LOVAZA [Concomitant]
     Indication: SCHIZOPHRENIA
     Route: 048
  2. ARIPIPRAZOLE [Concomitant]
     Indication: SCHIZOPHRENIA
     Dosage: 20 MG DAILY
     Route: 048
     Dates: start: 20040701
  3. CLOZAPINE [Suspect]
     Indication: SCHIZOPHRENIA
     Dosage: 300 MG DAILY
     Route: 048
     Dates: start: 20040701
  4. ALCOHOL [Concomitant]
     Dosage: 12 U DAILY
     Route: 065

REACTIONS (4)
  - HAEMOPTYSIS [None]
  - HAEMATEMESIS [None]
  - NEUTROPHIL COUNT INCREASED [None]
  - WHITE BLOOD CELL COUNT INCREASED [None]
